FAERS Safety Report 8250431-7 (Version None)
Quarter: 2012Q2

REPORT INFORMATION
  Report Type: 
  Country: None (occurrence: None)
  Receive Date: 20120402
  Receipt Date: 20120322
  Transmission Date: 20120825
  Serious: Yes (Hospitalization)
  Sender: FDA-Public Use
  Company Number: US-JNJFOC-20101204780

PATIENT
  Sex: Female
  Weight: 33.4 kg

DRUGS (9)
  1. LURIDE [Concomitant]
  2. VITAMIN D [Concomitant]
  3. REMICADE [Suspect]
     Indication: INFLAMMATORY BOWEL DISEASE
     Route: 042
     Dates: start: 20100903
  4. SLOW FE [Concomitant]
  5. CULTURELLE [Concomitant]
  6. MESALAMINE [Concomitant]
  7. VIACTIV CALCIUM CHEWS [Concomitant]
  8. VANCOMYCIN [Concomitant]
  9. MULTI-VITAMINS [Concomitant]

REACTIONS (1)
  - CLOSTRIDIAL INFECTION [None]
